FAERS Safety Report 10592016 (Version 3)
Quarter: 2014Q4

REPORT INFORMATION
  Report Type: Spontaneous
  Country: JP (occurrence: JP)
  Receive Date: 20141119
  Receipt Date: 20141226
  Transmission Date: 20150529
  Serious: Yes (Hospitalization)
  Sender: FDA-Public Use
  Company Number: JP-ROCHE-1492605

PATIENT
  Age: 80 Year
  Sex: Female
  Weight: 45 kg

DRUGS (17)
  1. ONEALFA [Concomitant]
     Active Substance: ALFACALCIDOL
     Indication: OSTEOPOROSIS
     Route: 048
     Dates: end: 20141101
  2. TAKEPRON [Concomitant]
     Active Substance: LANSOPRAZOLE
     Route: 048
     Dates: start: 20140210
  3. DICETAMIN (JAPAN) [Concomitant]
     Indication: ANAEMIA
     Route: 048
     Dates: start: 20140208, end: 201402
  4. MIRCERA [Suspect]
     Active Substance: PEGZEREPOETIN ALFA
     Indication: NEPHROGENIC ANAEMIA
     Dosage: MOST RECENT DOSE RECEIVED IN /NOV/2014
     Route: 042
     Dates: start: 20140514, end: 20140529
  5. LOSARTAN POTASSIUM. [Concomitant]
     Active Substance: LOSARTAN POTASSIUM
     Indication: DIABETIC NEPHROPATHY
     Route: 048
  6. PREDONINE [Concomitant]
     Active Substance: PREDNISOLONE\PREDNISOLONE ACETATE\PREDNISOLONE SODIUM SUCCINATE
     Indication: POLYMYOSITIS
     Route: 048
  7. MIRCERA [Suspect]
     Active Substance: PEGZEREPOETIN ALFA
     Route: 042
     Dates: start: 20140611, end: 20140625
  8. FERROUS CITRATE [Concomitant]
     Active Substance: FERROUS CITRATE
     Indication: PROPHYLAXIS
     Route: 048
     Dates: end: 20141101
  9. MIRCERA [Suspect]
     Active Substance: PEGZEREPOETIN ALFA
     Route: 042
     Dates: start: 20140709, end: 20141102
  10. FLUVASTATIN [Concomitant]
     Active Substance: FLUVASTATIN SODIUM
     Indication: HYPERLIPIDAEMIA
     Route: 048
  11. FOSAMAX [Concomitant]
     Active Substance: ALENDRONATE SODIUM
     Indication: OSTEOPOROSIS
     Route: 048
     Dates: end: 20141101
  12. NOVORAPID [Concomitant]
     Active Substance: INSULIN ASPART
     Indication: DIABETES MELLITUS
     Route: 058
  13. ARTIST [Concomitant]
     Active Substance: CARVEDILOL
     Indication: ATRIAL FIBRILLATION
     Route: 048
     Dates: start: 20140210
  14. WARFARIN [Concomitant]
     Active Substance: WARFARIN
     Indication: ATRIAL FIBRILLATION
     Route: 048
     Dates: start: 20140212, end: 20141101
  15. FUROSEMIDE. [Concomitant]
     Active Substance: FUROSEMIDE
     Indication: ATRIAL FIBRILLATION
     Route: 048
     Dates: start: 20140210, end: 20141101
  16. FEBURIC [Concomitant]
     Active Substance: FEBUXOSTAT
     Indication: HYPERURICAEMIA
     Route: 048
     Dates: start: 201402
  17. DICETAMIN (JAPAN) [Concomitant]
     Indication: ANAEMIA
     Route: 048
     Dates: start: 20140216

REACTIONS (1)
  - Anaemia [Recovered/Resolved]

NARRATIVE: CASE EVENT DATE: 20141101
